FAERS Safety Report 9937002 (Version 1)
Quarter: 2014Q1

REPORT INFORMATION
  Report Type: Spontaneous
  Country: US (occurrence: None)
  Receive Date: 20140116
  Receipt Date: 20140116
  Transmission Date: 20141002
  Serious: Yes (Hospitalization)
  Sender: FDA-Public Use
  Company Number: 2013AP009043

PATIENT
  Age: 50 Year
  Sex: Female

DRUGS (4)
  1. DONEPEZIL HYDROCHLORIDE TABLETS [Suspect]
     Indication: SECONDARY PROGRESSIVE MULTIPLE SCLEROSIS
  2. FAMPRIDINE [Suspect]
     Indication: SECONDARY PROGRESSIVE MULTIPLE SCLEROSIS
  3. GLATIRAMER ACETATE [Concomitant]
  4. BACLOFEN [Concomitant]

REACTIONS (1)
  - Secondary progressive multiple sclerosis [None]
